FAERS Safety Report 20950624 (Version 1)
Quarter: 2022Q2

REPORT INFORMATION
  Report Type: Spontaneous
  Country: US (occurrence: None)
  Receive Date: 20220612
  Receipt Date: 20220612
  Transmission Date: 20220721
  Serious: Yes (Death)
  Sender: FDA-Public Use
  Company Number: None

PATIENT
  Sex: Male

DRUGS (1)
  1. CYTARABINE [Suspect]
     Active Substance: CYTARABINE
     Dates: end: 20220610

REACTIONS (6)
  - Acute respiratory failure [None]
  - Metabolic acidosis [None]
  - General physical health deterioration [None]
  - Cardio-respiratory arrest [None]
  - Pulmonary embolism [None]
  - Subclavian vein perforation [None]

NARRATIVE: CASE EVENT DATE: 20220610
